FAERS Safety Report 20867502 (Version 1)
Quarter: 2022Q2

REPORT INFORMATION
  Report Type: Spontaneous
  Country: US (occurrence: US)
  Receive Date: 20220524
  Receipt Date: 20220524
  Transmission Date: 20220721
  Serious: No
  Sender: FDA-Public Use
  Company Number: US-BRISTOL-MYERS SQUIBB COMPANY-2022-020181

PATIENT
  Sex: Male

DRUGS (1)
  1. YERVOY [Suspect]
     Active Substance: IPILIMUMAB
     Indication: Mesothelioma
     Dosage: DOSE : UNKNOWN;     FREQ : EVERY 3 WEEKS
     Dates: start: 2022

REACTIONS (3)
  - Chills [Unknown]
  - Tremor [Unknown]
  - Feeling hot [Unknown]

NARRATIVE: CASE EVENT DATE: 20200101
